FAERS Safety Report 21307759 (Version 1)
Quarter: 2022Q3

REPORT INFORMATION
  Report Type: Report from Study
  Country: IL (occurrence: IL)
  Receive Date: 20220908
  Receipt Date: 20220908
  Transmission Date: 20221027
  Serious: Yes (Death)
  Sender: FDA-Public Use
  Company Number: IL-TAKEDA-2022TUS062339

PATIENT

DRUGS (1)
  1. MOBOCERTINIB [Suspect]
     Active Substance: MOBOCERTINIB
     Indication: Product used for unknown indication
     Dosage: UNK
     Route: 065
     Dates: start: 20211118, end: 20220524

REACTIONS (1)
  - Neoplasm progression [Fatal]

NARRATIVE: CASE EVENT DATE: 20220602
